FAERS Safety Report 24156537 (Version 1)
Quarter: 2024Q3

REPORT INFORMATION
  Report Type: Spontaneous
  Country: CN (occurrence: CN)
  Receive Date: 20240731
  Receipt Date: 20240731
  Transmission Date: 20241017
  Serious: Yes (Other)
  Sender: BAUSCH AND LOMB
  Company Number: CN-BAUSCH-BL-2024-011397

PATIENT
  Age: 6 Decade
  Sex: Male

DRUGS (11)
  1. DEXAMETHASONE [Suspect]
     Active Substance: DEXAMETHASONE
     Indication: Light chain disease
     Dosage: VD CHEMOTHERAPY REGIMEN/ FIRST CYCLE (35-DAY CYCLE)
     Route: 042
     Dates: start: 202111, end: 2021
  2. DEXAMETHASONE [Suspect]
     Active Substance: DEXAMETHASONE
     Dosage: VD CHEMOTHERAPY REGIMEN/ SECOND CYCLE
     Route: 042
     Dates: start: 202112
  3. BORTEZOMIB [Suspect]
     Active Substance: BORTEZOMIB
     Indication: Light chain disease
     Dosage: VD CHEMOTHERAPY REGIMEN/ FIRST CYCLE (35 DAYS)
     Route: 058
     Dates: start: 202111, end: 2021
  4. BORTEZOMIB [Suspect]
     Active Substance: BORTEZOMIB
     Dosage: VD CHEMOTHERAPY REGIMEN/ SECOND CYCLE
     Route: 058
     Dates: start: 202112
  5. TACROLIMUS [Concomitant]
     Active Substance: TACROLIMUS
     Indication: Immunosuppression
     Route: 065
     Dates: start: 202004
  6. MYCOPHENOLATE MOFETIL [Concomitant]
     Active Substance: MYCOPHENOLATE MOFETIL
     Indication: Immunosuppression
     Route: 065
     Dates: start: 202004
  7. PREDNISOLONE [Concomitant]
     Active Substance: PREDNISOLONE
     Indication: Fibrillary glomerulonephritis
     Route: 065
     Dates: start: 201402, end: 2014
  8. PREDNISOLONE [Concomitant]
     Active Substance: PREDNISOLONE
     Dosage: TAPPERED DOSE
     Route: 065
     Dates: start: 2014
  9. PREDNISOLONE [Concomitant]
     Active Substance: PREDNISOLONE
     Dosage: REDUCED DOSE
     Route: 065
     Dates: start: 2014, end: 2014
  10. PREDNISOLONE [Concomitant]
     Active Substance: PREDNISOLONE
     Route: 065
     Dates: start: 201806
  11. PREDNISONE [Concomitant]
     Active Substance: PREDNISONE
     Indication: Immunosuppression
     Route: 065
     Dates: start: 202004

REACTIONS (1)
  - Therapy partial responder [Unknown]

NARRATIVE: CASE EVENT DATE: 20211201
